FAERS Safety Report 17507800 (Version 1)
Quarter: 2020Q1

REPORT INFORMATION
  Report Type: Spontaneous
  Country: JP (occurrence: JP)
  Receive Date: 20200306
  Receipt Date: 20200306
  Transmission Date: 20200409
  Serious: Yes (Hospitalization)
  Sender: FDA-Public Use
  Company Number: JP-TEVA-2020-JP-1196743

PATIENT
  Age: 47 Year
  Sex: Female
  Weight: 39 kg

DRUGS (7)
  1. SALINE [Suspect]
     Active Substance: SODIUM CHLORIDE
     Indication: HYPERCALCAEMIA
     Route: 050
  2. DENOSUMAB [Suspect]
     Active Substance: DENOSUMAB
     Route: 058
  3. LETROZOLE. [Suspect]
     Active Substance: LETROZOLE
     Indication: BREAST CANCER FEMALE
     Dosage: 2.5 MILLIGRAM DAILY;
     Route: 065
  4. THIAMAZOLE [Concomitant]
     Active Substance: METHIMAZOLE
     Indication: HYPERTHYROIDISM
     Route: 065
  5. POTASSIUM-IODIDE [Concomitant]
     Indication: HYPERTHYROIDISM
     Route: 065
  6. DENOSUMAB [Suspect]
     Active Substance: DENOSUMAB
     Indication: METASTATIC BONE DISEASE PROPHYLAXIS
     Route: 058
  7. CALCITONIN [Suspect]
     Active Substance: CALCITONIN
     Indication: HYPERCALCAEMIA
     Route: 065

REACTIONS (3)
  - Drug ineffective [Unknown]
  - Withdrawal syndrome [Recovered/Resolved]
  - Hypercalcaemia [Recovered/Resolved]
